FAERS Safety Report 7355121-0 (Version None)
Quarter: 2011Q1

REPORT INFORMATION
  Report Type: 
  Country: None (occurrence: None)
  Receive Date: 20110316
  Receipt Date: 20110302
  Transmission Date: 20110831
  Serious: Yes (Other)
  Sender: FDA-Public Use
  Company Number: DE-ELI_LILLY_AND_COMPANY-DE201103000857

PATIENT
  Sex: Male

DRUGS (2)
  1. VIDAZA [Concomitant]
  2. CIALIS [Suspect]
     Dosage: 20 MG, AS NEEDED

REACTIONS (3)
  - EPISTAXIS [None]
  - MYELOID LEUKAEMIA [None]
  - PLATELET COUNT DECREASED [None]
